FAERS Safety Report 24117311 (Version 1)
Quarter: 2024Q3

REPORT INFORMATION
  Report Type: Spontaneous
  Country: US (occurrence: US)
  Receive Date: 20240722
  Receipt Date: 20240722
  Transmission Date: 20241016
  Serious: Yes (Other)
  Sender: BRISTOL MYERS SQUIBB
  Company Number: US-BRISTOL-MYERS SQUIBB COMPANY-2024-111913

PATIENT
  Age: 63 Year
  Sex: Male

DRUGS (2)
  1. THALOMID [Suspect]
     Active Substance: THALIDOMIDE
     Indication: Subacute cutaneous lupus erythematosus
     Dosage: FREQ: 28
  2. THALOMID [Suspect]
     Active Substance: THALIDOMIDE
     Dates: start: 20240422

REACTIONS (2)
  - Subacute cutaneous lupus erythematosus [Recovering/Resolving]
  - Condition aggravated [Recovering/Resolving]

NARRATIVE: CASE EVENT DATE: 20240101
